FAERS Safety Report 26179312 (Version 1)
Quarter: 2025Q4

REPORT INFORMATION
  Report Type: Spontaneous
  Country: US (occurrence: None)
  Receive Date: 20251218
  Receipt Date: 20251218
  Transmission Date: 20260118
  Serious: Yes (Hospitalization)
  Sender: FDA-CTU
  Company Number: None

PATIENT
  Age: 61 Year
  Sex: Male

DRUGS (1)
  1. PIRFENIDONE [Suspect]
     Active Substance: PIRFENIDONE
     Indication: Interstitial lung disease
     Dosage: FREQUENCY : 3 TIMES A DAY;

REACTIONS (6)
  - Throat irritation [None]
  - Product taste abnormal [None]
  - Hair growth abnormal [None]
  - Nail growth abnormal [None]
  - Oesophageal-pulmonary fistula [None]
  - Therapy interrupted [None]
